FAERS Safety Report 14314137 (Version 5)
Quarter: 2018Q3

REPORT INFORMATION
  Report Type: Report from Study
  Country: US (occurrence: US)
  Receive Date: 20171221
  Receipt Date: 20180802
  Transmission Date: 20181010
  Serious: Yes (Hospitalization)
  Sender: FDA-Public Use
  Company Number: US-EISAI MEDICAL RESEARCH-EC-2017-034393

PATIENT
  Age: 11 Year
  Sex: Male
  Weight: 28 kg

DRUGS (21)
  1. PERAMPANEL [Suspect]
     Active Substance: PERAMPANEL
     Indication: EPILEPSY
     Dosage: VIA G?TUBE
     Dates: start: 20171024, end: 20171030
  2. PERAMPANEL [Suspect]
     Active Substance: PERAMPANEL
     Dosage: VIA G?TUBE
     Dates: start: 20171215, end: 20171217
  3. KEPPRA [Concomitant]
     Active Substance: LEVETIRACETAM
  4. ALBUTEROL. [Concomitant]
     Active Substance: ALBUTEROL
  5. CLOTRIMAZOLE. [Concomitant]
     Active Substance: CLOTRIMAZOLE
  6. CLARITIN [Concomitant]
     Active Substance: LORATADINE
  7. PERAMPANEL [Suspect]
     Active Substance: PERAMPANEL
     Dosage: VIA G?TUBE
     Dates: start: 20171207, end: 20171207
  8. RANITIDINE. [Concomitant]
     Active Substance: RANITIDINE
  9. DIASTAT ACUDIAL [Concomitant]
     Active Substance: DIAZEPAM
  10. BETAMETHASONE. [Concomitant]
     Active Substance: BETAMETHASONE
  11. PERAMPANEL [Suspect]
     Active Substance: PERAMPANEL
     Dosage: VIA G?TUBE
     Dates: start: 20171031, end: 20171129
  12. PERAMPANEL [Suspect]
     Active Substance: PERAMPANEL
     Dosage: VIA G?TUBE
     Dates: start: 20171130, end: 20171206
  13. HYPER?SAL [Concomitant]
  14. PERAMPANEL [Suspect]
     Active Substance: PERAMPANEL
     Dosage: VIA G?TUBE
     Dates: start: 20171208, end: 20171214
  15. PERAMPANEL [Suspect]
     Active Substance: PERAMPANEL
     Dosage: VIA G?TUBE
     Dates: start: 20171218
  16. KLONOPIN [Concomitant]
     Active Substance: CLONAZEPAM
  17. FLUTICASONE. [Concomitant]
     Active Substance: FLUTICASONE
  18. CLARITHROMYCIN. [Concomitant]
     Active Substance: CLARITHROMYCIN
  19. ZONISAMIDE. [Concomitant]
     Active Substance: ZONISAMIDE
  20. MIRALAX [Concomitant]
     Active Substance: POLYETHYLENE GLYCOL 3350
  21. BUDESONIDE. [Concomitant]
     Active Substance: BUDESONIDE

REACTIONS (2)
  - Somnolence [Recovered/Resolved]
  - Rhinovirus infection [Recovered/Resolved]

NARRATIVE: CASE EVENT DATE: 20171215
